FAERS Safety Report 6445888-8 (Version None)
Quarter: 2009Q4

REPORT INFORMATION
  Report Type: 
  Country: None (occurrence: None)
  Receive Date: 20091119
  Receipt Date: 20081006
  Transmission Date: 20100525
  Serious: No
  Sender: FDA-Public Use
  Company Number: A0749235A

PATIENT
  Age: 55 Year
  Sex: Female
  Weight: 65.5 kg

DRUGS (6)
  1. WELLBUTRIN SR [Suspect]
     Dosage: 150MG TWICE PER DAY
     Route: 048
     Dates: start: 20080905, end: 20080919
  2. METOPROLOL [Concomitant]
     Indication: HYPERTENSION
     Dosage: 50MG PER DAY
     Route: 048
     Dates: start: 20060101
  3. HYDROCHLOROTHIAZIDE [Concomitant]
     Indication: HYPERTENSION
     Dosage: 25MG PER DAY
     Route: 048
     Dates: start: 20060101
  4. XANAX [Concomitant]
     Indication: ANXIETY
     Dosage: .5MG AS REQUIRED
     Route: 048
     Dates: start: 20060101
  5. LOVASTATIN [Concomitant]
     Dosage: 40MG PER DAY
     Route: 048
  6. HYDROCODONE BITARTRATE AND ACETAMINOPHEN [Concomitant]
     Indication: PAIN
     Route: 048
     Dates: start: 20060101

REACTIONS (2)
  - DRUG INEFFECTIVE [None]
  - RESTLESSNESS [None]
